FAERS Safety Report 11003494 (Version 1)
Quarter: 2015Q2

REPORT INFORMATION
  Report Type: Spontaneous
  Country: US (occurrence: None)
  Receive Date: 20150408
  Receipt Date: 20150408
  Transmission Date: 20150821
  Serious: No
  Sender: FDA-Public Use
  Company Number: None

PATIENT
  Age: 49 Year
  Sex: Female
  Weight: 113.4 kg

DRUGS (1)
  1. ARIMIDEX [Suspect]
     Active Substance: ANASTROZOLE
     Indication: BREAST CANCER
     Dosage: 1TAKEN BY MOUTH
     Route: 048
     Dates: start: 20140301, end: 20150407

REACTIONS (3)
  - Weight increased [None]
  - Emotional disorder [None]
  - Stress [None]

NARRATIVE: CASE EVENT DATE: 20150407
